FAERS Safety Report 6998294-1 (Version None)
Quarter: 2010Q3

REPORT INFORMATION
  Report Type: 
  Country: None (occurrence: None)
  Receive Date: 20100920
  Receipt Date: 20100503
  Transmission Date: 20110219
  Serious: No
  Sender: FDA-Public Use
  Company Number: US-ASTRAZENECA-2010SE19957

PATIENT
  Age: 88 Year
  Sex: Female
  Weight: 52.2 kg

DRUGS (3)
  1. SEROQUEL [Suspect]
     Route: 048
     Dates: start: 20100430, end: 20100502
  2. HYPERTENSION MEDICATION [Concomitant]
  3. THYROID MEDICATION [Concomitant]

REACTIONS (5)
  - FATIGUE [None]
  - FEELING COLD [None]
  - HYPOTENSION [None]
  - SOMNOLENCE [None]
  - UNRESPONSIVE TO STIMULI [None]
